FAERS Safety Report 8000140-4 (Version None)
Quarter: 2011Q4

REPORT INFORMATION
  Report Type: 
  Country: None (occurrence: None)
  Receive Date: 20111220
  Receipt Date: 20111220
  Transmission Date: 20120403
  Serious: Yes (Life-Threatening)
  Sender: FDA-Public Use
  Company Number: None

PATIENT
  Age: 46 Year
  Sex: Male
  Weight: 85 kg

DRUGS (2)
  1. IBUPROFEN [Concomitant]
  2. ENBREL [Suspect]
     Indication: PSORIATIC ARTHROPATHY
     Dosage: ENBREL 50MG WEEKLY SUBCUTANEOUS 057
     Route: 058
     Dates: start: 20090101, end: 20110701

REACTIONS (1)
  - THYROID CANCER [None]
